FAERS Safety Report 6770285-5 (Version None)
Quarter: 2010Q2

REPORT INFORMATION
  Report Type: 
  Country: None (occurrence: None)
  Receive Date: 20100615
  Receipt Date: 20100609
  Transmission Date: 20101027
  Serious: Yes (Hospitalization, Other)
  Sender: FDA-Public Use
  Company Number: IT-BRISTOL-MYERS SQUIBB COMPANY-15144702

PATIENT
  Age: 66 Year
  Sex: Female

DRUGS (3)
  1. COUMADIN [Suspect]
     Indication: INTRACARDIAC THROMBUS
     Dosage: 22FEB08-04JUN2010; INTERRUPTED ON 04JUN2010.
     Route: 048
     Dates: start: 20080222
  2. AUGMENTIN '125' [Suspect]
     Indication: CYSTITIS
     Dosage: 875 MG + 125 MG TABS
     Route: 048
     Dates: start: 20100531
  3. CIPROXIN [Concomitant]
     Indication: CYSTITIS
     Dosage: 500MG TABS
     Route: 048
     Dates: start: 20100519, end: 20100531

REACTIONS (3)
  - CYSTITIS [None]
  - HAEMATURIA [None]
  - INTERNATIONAL NORMALISED RATIO INCREASED [None]
